FAERS Safety Report 10648949 (Version 1)
Quarter: 2014Q4

REPORT INFORMATION
  Report Type: Spontaneous
  Country: US (occurrence: None)
  Receive Date: 20141211
  Receipt Date: 20141211
  Transmission Date: 20150529
  Serious: No
  Sender: FDA-Public Use
  Company Number: None

PATIENT
  Age: 41 Year
  Sex: Female

DRUGS (1)
  1. TECIFIDERA [Suspect]
     Active Substance: DIMETHYL FUMARATE
     Indication: MULTIPLE SCLEROSIS
     Route: 048
     Dates: start: 20141015

REACTIONS (5)
  - Pain [None]
  - Dizziness [None]
  - Hepatic enzyme increased [None]
  - Multiple sclerosis [None]
  - Vision blurred [None]

NARRATIVE: CASE EVENT DATE: 20141127
